FAERS Safety Report 16219593 (Version 2)
Quarter: 2020Q3

REPORT INFORMATION
  Report Type: Spontaneous
  Country: US (occurrence: US)
  Receive Date: 20190420
  Receipt Date: 20200731
  Transmission Date: 20201102
  Serious: Yes (Death, Hospitalization)
  Sender: FDA-Public Use
  Company Number: US-JNJFOC-20190413327

PATIENT
  Age: 6 Decade
  Sex: Male

DRUGS (1)
  1. XARELTO [Suspect]
     Active Substance: RIVAROXABAN
     Indication: DEEP VEIN THROMBOSIS
     Dosage: ORDERED TO START 15 MG BY MOUTH 02 TIMES A DAY FOR 21 DAYS AND THEN 20MG ONCE DAILY THEREAFTER
     Route: 048
     Dates: start: 201812, end: 201812

REACTIONS (1)
  - Epistaxis [Unknown]
